FAERS Safety Report 7702205-0 (Version None)
Quarter: 2011Q3

REPORT INFORMATION
  Report Type: 
  Country: None (occurrence: None)
  Receive Date: 20110822
  Receipt Date: 20110818
  Transmission Date: 20111222
  Serious: Yes (Hospitalization)
  Sender: FDA-Public Use
  Company Number: US-GILEAD-2011-0043090

PATIENT
  Age: 73 Year
  Sex: Female

DRUGS (2)
  1. REVATIO [Concomitant]
  2. LETAIRIS [Suspect]
     Indication: PRODUCT USED FOR UNKNOWN INDICATION
     Route: 048
     Dates: start: 20091117

REACTIONS (2)
  - FLUID OVERLOAD [None]
  - DYSPNOEA [None]
